FAERS Safety Report 14637571 (Version 4)
Quarter: 2018Q2

REPORT INFORMATION
  Report Type: Report from Study
  Country: US (occurrence: US)
  Receive Date: 20180314
  Receipt Date: 20180624
  Transmission Date: 20180711
  Serious: No
  Sender: FDA-Public Use
  Company Number: PHEH2018US010044

PATIENT
  Sex: Male
  Weight: 62 kg

DRUGS (2)
  1. ENTRESTO [Suspect]
     Active Substance: SACUBITRIL\VALSARTAN
     Indication: PRODUCT USED FOR UNKNOWN INDICATION
     Dosage: UNK UNK, QD (TAKES AT NIGHT)
     Route: 065
  2. PENICILLIN G SODIUM. [Suspect]
     Active Substance: PENICILLIN G SODIUM
     Indication: TOOTH DISORDER
     Route: 065

REACTIONS (5)
  - Tooth disorder [Unknown]
  - Abdominal discomfort [Unknown]
  - Weight increased [Unknown]
  - Decreased appetite [Unknown]
  - Inappropriate schedule of drug administration [Unknown]
